FAERS Safety Report 6466408-8 (Version None)
Quarter: 2009Q4

REPORT INFORMATION
  Report Type: 
  Country: None (occurrence: None)
  Receive Date: 20091201
  Receipt Date: 20091201
  Transmission Date: 20100525
  Serious: Yes (Other)
  Sender: FDA-Public Use
  Company Number: None

PATIENT
  Age: 64 Year
  Sex: Female
  Weight: 58.9676 kg

DRUGS (3)
  1. LATISSE [Suspect]
     Indication: HYPOTRICHOSIS
     Dosage: ONE DROP PER EYE ON FRESH APPL ONE ADAY
     Dates: start: 20090224, end: 20090407
  2. LATISSE [Suspect]
     Indication: HYPOTRICHOSIS
     Dosage: ONE DROP PER EYE ON FRESH APPL ONE ADAY
     Dates: start: 20090803, end: 20090808
  3. LATISSE [Suspect]

REACTIONS (5)
  - ERYTHEMA OF EYELID [None]
  - EYE DISORDER [None]
  - EYELID OEDEMA [None]
  - MADAROSIS [None]
  - SKIN EXFOLIATION [None]
